FAERS Safety Report 6444663-8 (Version None)
Quarter: 2009Q4

REPORT INFORMATION
  Report Type: 
  Country: None (occurrence: None)
  Receive Date: 20091110
  Receipt Date: 20090901
  Transmission Date: 20100525
  Serious: No
  Sender: FDA-Public Use
  Company Number: 1000008178

PATIENT
  Age: 37 Year
  Sex: Female
  Weight: 72.5755 kg

DRUGS (4)
  1. SAVELLA [Suspect]
     Indication: DEPRESSION
     Dosage: 6 MG (6 MG, 1 IN 1 D), ORAL
     Route: 048
     Dates: start: 20090804, end: 20090806
  2. SAVELLA [Suspect]
     Indication: FIBROMYALGIA
     Dosage: 6 MG (6 MG, 1 IN 1 D), ORAL
     Route: 048
     Dates: start: 20090804, end: 20090806
  3. SAVELLA [Suspect]
     Indication: DEPRESSION
     Dosage: 12 MG (6 MG, 2 IN 1 D), ORAL
     Route: 048
     Dates: start: 20090807, end: 20090807
  4. SAVELLA [Suspect]
     Indication: FIBROMYALGIA
     Dosage: 12 MG (6 MG, 2 IN 1 D), ORAL
     Route: 048
     Dates: start: 20090807, end: 20090807

REACTIONS (2)
  - MOUTH ULCERATION [None]
  - SKIN EXFOLIATION [None]
